FAERS Safety Report 23066455 (Version 1)
Quarter: 2023Q4

REPORT INFORMATION
  Report Type: Report from Study
  Country: TH (occurrence: TH)
  Receive Date: 20231015
  Receipt Date: 20231015
  Transmission Date: 20240109
  Serious: Yes (Hospitalization)
  Sender: FDA-Public Use
  Company Number: TH-002147023-NVSC2023TH191437

PATIENT
  Sex: Female

DRUGS (5)
  1. KISQALI [Suspect]
     Active Substance: RIBOCICLIB
     Indication: Breast cancer metastatic
     Dosage: 3 DOSAGE FORM, QD (AFTER BREAKFAST) (200 MG)
     Route: 048
     Dates: start: 20221116
  2. KISQALI [Suspect]
     Active Substance: RIBOCICLIB
     Dosage: 2 DOSAGE FORM, QD (AFTER BREAKFAST, TAKING 3 WEEKS, SKIPPING 1 WEEK) (200 MG)
     Route: 048
     Dates: start: 20221221
  3. KISQALI [Suspect]
     Active Substance: RIBOCICLIB
     Dosage: 1 DOSAGE FORM, QD (AFTER BREAKFAST, TAKING 3 WEEKS, SKIPPING 1 WEEK) (200 MG)
     Route: 048
     Dates: start: 20230315
  4. LETROZOLE [Concomitant]
     Active Substance: LETROZOLE
     Indication: Product used for unknown indication
     Dosage: 1 DOSAGE FORM, QD (AFTER BREAKFAST) (2.5 MG)
     Route: 065
     Dates: start: 20220928
  5. DOMP-M [Concomitant]
     Indication: Product used for unknown indication
     Dosage: 1 DOSAGE FORM, TID (BEFORE BREAKFAST LUNCH AND DINNER)
     Route: 065

REACTIONS (8)
  - Dengue fever [Unknown]
  - Gastrointestinal haemorrhage [Unknown]
  - Sepsis [Unknown]
  - Hypertension [Unknown]
  - Waist circumference increased [Unknown]
  - Weight decreased [Unknown]
  - Skin exfoliation [Recovering/Resolving]
  - Peripheral swelling [Recovering/Resolving]
